FAERS Safety Report 8254977-7 (Version None)
Quarter: 2012Q2

REPORT INFORMATION
  Report Type: 
  Country: None (occurrence: None)
  Receive Date: 20120403
  Receipt Date: 20120327
  Transmission Date: 20120825
  Serious: Yes (Life-Threatening, Hospitalization)
  Sender: FDA-Public Use
  Company Number: SI-SANOFI-AVENTIS-2012SA021512

PATIENT
  Age: 79 Year
  Sex: Female

DRUGS (6)
  1. RAMIPRIL [Suspect]
     Route: 048
     Dates: start: 20110107, end: 20120106
  2. ESCITALOPRAM [Concomitant]
     Dosage: UNK
  3. LASIX [Suspect]
     Dosage: 1/2 TABLET OF 40MG PER DAY
     Route: 048
     Dates: start: 20110107, end: 20120106
  4. BISOPROLOL FUMARATE [Concomitant]
     Dosage: UNK
  5. ALDACTONE [Suspect]
     Route: 048
     Dates: start: 20110107, end: 20120106
  6. NITROGLYCERIN [Concomitant]
     Dosage: UNK

REACTIONS (3)
  - RENAL IMPAIRMENT [None]
  - ELECTROCARDIOGRAM QRS COMPLEX PROLONGED [None]
  - HYPERKALAEMIA [None]
